FAERS Safety Report 7308060-5 (Version None)
Quarter: 2011Q1

REPORT INFORMATION
  Report Type: 
  Country: None (occurrence: None)
  Receive Date: 20110223
  Receipt Date: 20100721
  Transmission Date: 20110831
  Serious: Yes (Hospitalization, Other)
  Sender: FDA-Public Use
  Company Number: US-BAYER-200943417NA

PATIENT
  Sex: Female
  Weight: 95 kg

DRUGS (3)
  1. ACCUTANE [Concomitant]
     Indication: HIDRADENITIS
     Dosage: 80 MG, UNK
     Dates: start: 20040402, end: 20040607
  2. KENALOG [Concomitant]
     Indication: HIDRADENITIS
     Dosage: UNK
     Dates: start: 20040607
  3. YASMIN [Suspect]
     Indication: CONTRACEPTION
     Dosage: UNK
     Dates: start: 20040510, end: 20040604

REACTIONS (5)
  - SYNCOPE [None]
  - PULMONARY ARTERY THROMBOSIS [None]
  - DYSPNOEA [None]
  - PULMONARY EMBOLISM [None]
  - DEEP VEIN THROMBOSIS [None]
